FAERS Safety Report 6266148-4 (Version None)
Quarter: 2009Q3

REPORT INFORMATION
  Report Type: 
  Country: None (occurrence: None)
  Receive Date: 20090713
  Receipt Date: 20090629
  Transmission Date: 20100115
  Serious: Yes (Disabling)
  Sender: FDA-Public Use
  Company Number: CA-MYLANLABS-2009S1011455

PATIENT
  Age: 66 Year
  Sex: Female

DRUGS (2)
  1. FLUOXETINE HCL [Suspect]
     Indication: DEPRESSION
  2. CHAMPIX /05703001/ [Interacting]
     Indication: SMOKING CESSATION THERAPY

REACTIONS (2)
  - DRUG INTERACTION [None]
  - TREMOR [None]
